FAERS Safety Report 5051490-5 (Version None)
Quarter: 2006Q3

REPORT INFORMATION
  Report Type: 
  Country: None (occurrence: None)
  Receive Date: 20060710
  Receipt Date: 20060627
  Transmission Date: 20061208
  Serious: Yes (Death)
  Sender: FDA-Public Use
  Company Number: 163-21880-06020197

PATIENT
  Age: 49 Year
  Sex: Male
  Weight: 73.0291 kg

DRUGS (17)
  1. REVLIMID [Suspect]
     Indication: MULTIPLE MYELOMA
     Dosage: DAILY ORAL
     Route: 048
     Dates: start: 20060101, end: 20060501
  2. AMOXICILLIN [Suspect]
     Dosage: 500 MG
     Dates: start: 20060204
  3. PREDNISONE [Concomitant]
  4. PERCOCET [Concomitant]
  5. AMBIEN [Concomitant]
  6. NEURONTIN [Concomitant]
  7. DECADRON [Concomitant]
  8. VELCADE [Concomitant]
  9. DURAGESIC (FENTANYL) (POULTICE OR PATCH) [Concomitant]
  10. MORPHINE SULFATE [Concomitant]
  11. KYTRIL [Concomitant]
  12. RESTORIL [Concomitant]
  13. VICODIN [Concomitant]
  14. PROTONIX [Concomitant]
  15. COMPAZINE (PROCHLORPERAZINE EDISYLATE) (SUPPOSITORY) [Concomitant]
  16. COUMADIN [Concomitant]
  17. OXYCODONE HCL [Concomitant]

REACTIONS (2)
  - INTERNATIONAL NORMALISED RATIO INCREASED [None]
  - MYOCARDIAL INFARCTION [None]
